FAERS Safety Report 4569558-6 (Version None)
Quarter: 2005Q1

REPORT INFORMATION
  Report Type: 
  Country: None (occurrence: None)
  Receive Date: 20050201
  Receipt Date: 20050118
  Transmission Date: 20050727
  Serious: No
  Sender: FDA-Public Use
  Company Number: 2005AC00095

PATIENT
  Age: 30 Year
  Sex: Male

DRUGS (3)
  1. PROPOFOL [Suspect]
     Indication: GENERAL ANAESTHESIA
  2. ENFLURANE [Suspect]
     Indication: GENERAL ANAESTHESIA
  3. ISOFLURANE [Suspect]
     Indication: GENERAL ANAESTHESIA

REACTIONS (12)
  - ANAESTHETIC COMPLICATION NEUROLOGICAL [None]
  - AURA [None]
  - CONVERSION DISORDER [None]
  - CONVULSION [None]
  - DEPRESSED LEVEL OF CONSCIOUSNESS [None]
  - FALL [None]
  - MUSCLE TWITCHING [None]
  - MUSCULOSKELETAL STIFFNESS [None]
  - POST PROCEDURAL COMPLICATION [None]
  - POSTICTAL STATE [None]
  - TREMOR [None]
  - VISION BLURRED [None]
